FAERS Safety Report 8152328-X (Version None)
Quarter: 2012Q1

REPORT INFORMATION
  Report Type: 
  Country: None (occurrence: None)
  Receive Date: 20120214
  Receipt Date: 20120131
  Transmission Date: 20120608
  Serious: Yes (Disabling)
  Sender: FDA-Public Use
  Company Number: DK-1168428

PATIENT
  Sex: Female
  Weight: 83 kg

DRUGS (6)
  1. PAMOL [Concomitant]
  2. ABALGIN [Concomitant]
  3. LANSOPRAZOLE [Concomitant]
  4. VAGIFEM [Concomitant]
  5. CIPROFLOXACIN HCL [Suspect]
     Indication: EAR DISORDER
     Dosage: (3 GTTS QD BID AURICULAR (OTIC))
     Route: 001
     Dates: start: 20080826, end: 20080903
  6. IMOZOP [Concomitant]

REACTIONS (9)
  - FALL [None]
  - UPPER LIMB FRACTURE [None]
  - HIP FRACTURE [None]
  - VIIITH NERVE LESION [None]
  - BALANCE DISORDER [None]
  - DEAFNESS UNILATERAL [None]
  - VOMITING [None]
  - DIZZINESS [None]
  - SUDDEN HEARING LOSS [None]
